FAERS Safety Report 21349089 (Version 1)
Quarter: 2022Q3

REPORT INFORMATION
  Report Type: Spontaneous
  Country: DE (occurrence: DE)
  Receive Date: 20220919
  Receipt Date: 20220919
  Transmission Date: 20221027
  Serious: Yes (Hospitalization)
  Sender: FDA-Public Use
  Company Number: DE-NOVARTISPH-NVSC2022DE210338

PATIENT
  Age: 37 Year
  Sex: Male

DRUGS (2)
  1. COTRIM [Suspect]
     Active Substance: SULFAMETHOXAZOLE\TRIMETHOPRIM
     Indication: Product used for unknown indication
     Dosage: 800|160 MG, (1-0-1-0)
     Route: 048
     Dates: start: 20210919
  2. PIRITRAMIDE [Suspect]
     Active Substance: PIRITRAMIDE
     Indication: Product used for unknown indication
     Dosage: 7.5 MG (2X AM)
     Route: 042
     Dates: start: 20210919

REACTIONS (5)
  - Faecaloma [Recovered/Resolved]
  - Constipation [Recovered/Resolved]
  - Paralysis [Recovered/Resolved]
  - Abdominal pain [Recovered/Resolved]
  - Vomiting [Recovered/Resolved]
